FAERS Safety Report 5774689-9 (Version None)
Quarter: 2008Q2

REPORT INFORMATION
  Report Type: 
  Country: None (occurrence: None)
  Receive Date: 20080616
  Receipt Date: 20080616
  Transmission Date: 20081010
  Serious: Yes (Other)
  Sender: FDA-Public Use
  Company Number: None

PATIENT
  Sex: Female
  Weight: 75.0703 kg

DRUGS (1)
  1. VELCADE [Suspect]
     Indication: ADENOIDAL DISORDER
     Dosage: 1.3 MG/M2 DAY 1, 4, 8, 11 Q 21 IV
     Route: 042
     Dates: start: 20080401, end: 20080610

REACTIONS (2)
  - DRUG HYPERSENSITIVITY [None]
  - PAIN [None]
